FAERS Safety Report 12843552 (Version 1)
Quarter: 2016Q4

REPORT INFORMATION
  Report Type: Spontaneous
  Country: US (occurrence: US)
  Receive Date: 20161013
  Receipt Date: 20161013
  Transmission Date: 20170207
  Serious: Yes (Hospitalization, Other)
  Sender: FDA-Public Use
  Company Number: None

PATIENT
  Age: 77 Year
  Sex: Female
  Weight: 83.92 kg

DRUGS (8)
  1. METFORMIN [Suspect]
     Active Substance: METFORMIN HYDROCHLORIDE
     Indication: DIABETES MELLITUS
     Dosage: METFORMIN - 1 PILL DAILY - ONCE A DAY - PO
     Route: 048
  2. ASPIRIN. [Suspect]
     Active Substance: ASPIRIN
  3. EQUATE ANTACID [Concomitant]
     Active Substance: CALCIUM CARBONATE
  4. HYDROXYUREA 500 MG [Suspect]
     Active Substance: HYDROXYUREA
     Indication: RED BLOOD CELL ABNORMALITY
  5. CARVEDILOL 6.25 MG [Suspect]
     Active Substance: CARVEDILOL
     Indication: DYSPNOEA
  6. POTASSIUM [Concomitant]
     Active Substance: POTASSIUM
  7. CENTRUM SILVER [Concomitant]
     Active Substance: MINERALS\VITAMINS
  8. LOSARTAN. [Concomitant]
     Active Substance: LOSARTAN

REACTIONS (5)
  - Dyspnoea [None]
  - Fluid retention [None]
  - Asthenia [None]
  - Dysphonia [None]
  - Alopecia [None]

NARRATIVE: CASE EVENT DATE: 20160514
